FAERS Safety Report 4501159-8 (Version None)
Quarter: 2004Q4

REPORT INFORMATION
  Report Type: 
  Country: None (occurrence: None)
  Receive Date: 20041109
  Receipt Date: 20041026
  Transmission Date: 20050328
  Serious: Yes (Life-Threatening)
  Sender: FDA-Public Use
  Company Number: EWC041041122

PATIENT
  Age: 62 Year
  Sex: Female

DRUGS (6)
  1. HUMALOG [Suspect]
     Indication: DIABETES MELLITUS
  2. HUMULIN N [Suspect]
     Indication: DIABETES MELLITUS
  3. TRAMADOL [Concomitant]
  4. VENORUTON FORTE (TROXERUTIN) [Concomitant]
  5. RHEFLUIN FORTE [Concomitant]
  6. RENITEN [Concomitant]

REACTIONS (4)
  - DRUG INTERACTION [None]
  - HYPOGLYCAEMIA [None]
  - LOSS OF CONSCIOUSNESS [None]
  - OVERDOSE [None]
